FAERS Safety Report 7108744-8 (Version None)
Quarter: 2010Q4

REPORT INFORMATION
  Report Type: 
  Country: None (occurrence: None)
  Receive Date: 20101115
  Receipt Date: 20101115
  Transmission Date: 20110411
  Serious: Yes (Other)
  Sender: FDA-Public Use
  Company Number: None

PATIENT
  Sex: Female
  Weight: 74.8435 kg

DRUGS (1)
  1. ABILIFY [Suspect]
     Indication: AFFECTIVE DISORDER
     Dosage: 30MG DAILY PO
     Route: 048
     Dates: start: 20081208, end: 20100228

REACTIONS (3)
  - DIARRHOEA [None]
  - INCONTINENCE [None]
  - TREMOR [None]
